FAERS Safety Report 14563915 (Version 4)
Quarter: 2018Q3

REPORT INFORMATION
  Report Type: Spontaneous
  Country: IT (occurrence: IT)
  Receive Date: 20180222
  Receipt Date: 20180911
  Transmission Date: 20181010
  Serious: Yes (Life-Threatening, Hospitalization, Other)
  Sender: FDA-Public Use
  Company Number: IT-MYLANLABS-2018M1011716

PATIENT
  Age: 4 Month
  Weight: 5 kg

DRUGS (31)
  1. LIDOCAINE. [Suspect]
     Active Substance: LIDOCAINE
     Indication: ARRHYTHMIA
     Dosage: UNK
     Route: 065
  2. AMIODARONE [Suspect]
     Active Substance: AMIODARONE
     Indication: TORSADE DE POINTES
  3. MEXILETINE [Suspect]
     Active Substance: MEXILETINE
     Indication: VENTRICULAR ARRHYTHMIA
  4. MEXILETINE [Suspect]
     Active Substance: MEXILETINE
     Indication: ARRHYTHMIA
     Dosage: UNK
  5. FLECAINIDE [Suspect]
     Active Substance: FLECAINIDE
     Indication: ARRHYTHMIA
     Dosage: UNK
  6. LIDOCAINE. [Suspect]
     Active Substance: LIDOCAINE
     Indication: VENTRICULAR ARRHYTHMIA
     Dosage: UNK
     Route: 065
  7. METOPROLOL. [Suspect]
     Active Substance: METOPROLOL
     Indication: ELECTROCARDIOGRAM QT PROLONGED
  8. METOPROLOL. [Suspect]
     Active Substance: METOPROLOL
     Indication: CARDIOMYOPATHY
  9. LIDOCAINE. [Suspect]
     Active Substance: LIDOCAINE
     Indication: WOLFF-PARKINSON-WHITE SYNDROME
     Dosage: UNK
     Route: 065
  10. LIDOCAINE. [Suspect]
     Active Substance: LIDOCAINE
     Indication: TORSADE DE POINTES
     Dosage: UNK
     Route: 065
  11. LIDOCAINE. [Suspect]
     Active Substance: LIDOCAINE
     Indication: VENTRICULAR TACHYCARDIA
  12. METOPROLOL. [Suspect]
     Active Substance: METOPROLOL
     Indication: VENTRICULAR ARRHYTHMIA
     Dosage: UNK
     Route: 065
  13. METOPROLOL. [Suspect]
     Active Substance: METOPROLOL
     Indication: ARRHYTHMIA
  14. AMIODARONE [Suspect]
     Active Substance: AMIODARONE
     Indication: ELECTROCARDIOGRAM QT PROLONGED
  15. MEXILETINE [Suspect]
     Active Substance: MEXILETINE
     Indication: TORSADE DE POINTES
  16. FLECAINIDE [Suspect]
     Active Substance: FLECAINIDE
     Indication: CARDIOMYOPATHY
  17. FLECAINIDE [Suspect]
     Active Substance: FLECAINIDE
     Indication: ELECTROCARDIOGRAM QT PROLONGED
  18. LIDOCAINE. [Suspect]
     Active Substance: LIDOCAINE
     Indication: CARDIOMYOPATHY
     Dosage: UNK
     Route: 065
  19. AMIODARONE [Suspect]
     Active Substance: AMIODARONE
     Indication: ARRHYTHMIA
     Dosage: UNK
     Route: 065
  20. FLECAINIDE [Suspect]
     Active Substance: FLECAINIDE
     Indication: TORSADE DE POINTES
  21. METOPROLOL. [Suspect]
     Active Substance: METOPROLOL
     Indication: TORSADE DE POINTES
  22. METOPROLOL. [Suspect]
     Active Substance: METOPROLOL
     Indication: WOLFF-PARKINSON-WHITE SYNDROME
  23. MEXILETINE [Suspect]
     Active Substance: MEXILETINE
     Indication: WOLFF-PARKINSON-WHITE SYNDROME
  24. FLECAINIDE [Suspect]
     Active Substance: FLECAINIDE
     Indication: WOLFF-PARKINSON-WHITE SYNDROME
  25. AMIODARONE [Suspect]
     Active Substance: AMIODARONE
     Indication: CARDIOMYOPATHY
  26. AMIODARONE [Suspect]
     Active Substance: AMIODARONE
     Indication: WOLFF-PARKINSON-WHITE SYNDROME
  27. FLECAINIDE [Suspect]
     Active Substance: FLECAINIDE
     Indication: VENTRICULAR TACHYCARDIA
  28. LIDOCAINE. [Suspect]
     Active Substance: LIDOCAINE
     Indication: ELECTROCARDIOGRAM QT PROLONGED
     Dosage: UNK
     Route: 065
  29. AMIODARONE [Suspect]
     Active Substance: AMIODARONE
     Indication: VENTRICULAR ARRHYTHMIA
  30. MEXILETINE [Suspect]
     Active Substance: MEXILETINE
     Indication: CARDIOMYOPATHY
  31. MEXILETINE [Suspect]
     Active Substance: MEXILETINE
     Indication: ELECTROCARDIOGRAM QT PROLONGED

REACTIONS (1)
  - Drug ineffective [Unknown]
